FAERS Safety Report 10588351 (Version 2)
Quarter: 2015Q1

REPORT INFORMATION
  Report Type: Spontaneous
  Country: GB (occurrence: GB)
  Receive Date: 20141117
  Receipt Date: 20150122
  Transmission Date: 20150720
  Serious: Yes (Death)
  Sender: FDA-Public Use
  Company Number: GB-BAYER-2014-169279

PATIENT
  Age: 81 Year
  Sex: Female

DRUGS (5)
  1. TIROFIBAN [Suspect]
     Active Substance: TIROFIBAN
     Dosage: 29 ML, UNK
     Route: 040
     Dates: start: 20140518
  2. HEPARIN [Suspect]
     Active Substance: HEPARIN SODIUM
     Dosage: 6000 IU, UNK
     Route: 042
     Dates: start: 20140518
  3. TIROFIBAN [Suspect]
     Active Substance: TIROFIBAN
     Dosage: 3 ML, UNK
     Route: 041
     Dates: start: 20140518
  4. ACETYLSALICYLIC ACID (} 100 MG) [Suspect]
     Active Substance: ASPIRIN
     Dosage: 300 MG, UNK
     Dates: start: 20140518
  5. TICAGRELOR [Suspect]
     Active Substance: TICAGRELOR
     Dosage: 180 MG, UNK
     Dates: start: 20140518

REACTIONS (1)
  - Pulmonary haemorrhage [Fatal]

NARRATIVE: CASE EVENT DATE: 20140518
